FAERS Safety Report 5632937-X (Version None)
Quarter: 2008Q1

REPORT INFORMATION
  Report Type: 
  Country: None (occurrence: None)
  Receive Date: 20080221
  Receipt Date: 20080211
  Transmission Date: 20080703
  Serious: Yes (Other)
  Sender: FDA-Public Use
  Company Number: PHHY2008AT01666

PATIENT
  Sex: Male

DRUGS (17)
  1. TRILEPTAL [Suspect]
     Dosage: 900 MG, UNK
     Dates: start: 20070928, end: 20070930
  2. TRILEPTAL [Suspect]
     Dosage: 600 MG, UNK
     Dates: start: 20071001, end: 20071004
  3. TRILEPTAL [Suspect]
     Dosage: 900 MG, UNK
     Dates: start: 20071005, end: 20071009
  4. TRILEPTAL [Suspect]
     Dosage: 600 MG, UNK
     Dates: start: 20071010, end: 20071014
  5. RISPERIDONE [Concomitant]
     Indication: MENTAL DISORDER
     Dosage: 3 MG, UNK
     Dates: start: 20070928, end: 20070929
  6. RISPERIDONE [Concomitant]
     Dosage: 6 MG, UNK
     Dates: start: 20070930, end: 20071009
  7. RISPERIDONE [Concomitant]
     Dosage: 3 MG, UNK
     Dates: start: 20071010
  8. PANTOPRAZOLE SODIUM [Concomitant]
     Dosage: 40 MG, UNK
     Dates: start: 20070928, end: 20071009
  9. PANTOPRAZOLE SODIUM [Concomitant]
     Dosage: 20 MG, UNK
     Dates: start: 20071010
  10. MIRTAZAPINE [Concomitant]
     Dosage: 30 MG, UNK
     Dates: start: 20070928
  11. TEMESTA [Concomitant]
     Dosage: 6 MG, UNK
     Dates: start: 20071005, end: 20071007
  12. TEMESTA [Concomitant]
     Dosage: 5 MG, UNK
     Dates: start: 20071008, end: 20071009
  13. TEMESTA [Concomitant]
     Dosage: 4 MG, UNK
     Dates: start: 20071010, end: 20071010
  14. TEMESTA [Concomitant]
     Dosage: 3 MG, UNK
     Dates: start: 20071011, end: 20071011
  15. TEMESTA [Concomitant]
     Dosage: 2 MG, UNK
     Dates: start: 20071012, end: 20071012
  16. ESCITALOPRAM [Concomitant]
     Dosage: 10 MG, UNK
     Dates: start: 20071010
  17. SELOKEN [Concomitant]
     Dosage: 47.5 MG, UNK
     Dates: start: 20071009

REACTIONS (9)
  - BLOOD TRIGLYCERIDES INCREASED [None]
  - DEPRESSION [None]
  - GAMMA-GLUTAMYLTRANSFERASE INCREASED [None]
  - HEART RATE INCREASED [None]
  - HYPERHIDROSIS [None]
  - NIGHTMARE [None]
  - RESTLESSNESS [None]
  - TACHYCARDIA [None]
  - TREMOR [None]
